FAERS Safety Report 21154260 (Version 1)
Quarter: 2022Q3

REPORT INFORMATION
  Report Type: Spontaneous
  Country: JP (occurrence: JP)
  Receive Date: 20220801
  Receipt Date: 20220801
  Transmission Date: 20221026
  Serious: Yes (Hospitalization, Other)
  Sender: FDA-Public Use
  Company Number: JP-CHUGAI-2022028326

PATIENT
  Age: 8 Decade
  Sex: Male

DRUGS (2)
  1. ACTEMRA [Suspect]
     Active Substance: TOCILIZUMAB
     Indication: Rheumatoid arthritis
     Dosage: UNK
     Route: 058
  2. RUXOLITINIB [Suspect]
     Active Substance: RUXOLITINIB
     Indication: Rheumatoid arthritis
     Dosage: UNK
     Route: 065

REACTIONS (5)
  - Gastric ulcer [Unknown]
  - Anaemia [Unknown]
  - Thrombocytosis [Unknown]
  - Myelofibrosis [Unknown]
  - Cytomegalovirus oesophagitis [Unknown]
